FAERS Safety Report 4671181-X (Version None)
Quarter: 2005Q2

REPORT INFORMATION
  Report Type: 
  Country: None (occurrence: None)
  Receive Date: 20050523
  Receipt Date: 20050513
  Transmission Date: 20051028
  Serious: Yes (Death)
  Sender: FDA-Public Use
  Company Number: 20040058USST

PATIENT
  Age: 42 Year
  Sex: Female

DRUGS (9)
  1. L-CARNITINE [Suspect]
     Dosage: 2 G IV
     Route: 042
     Dates: start: 20041119
  2. LANSOPRAZOLE [Suspect]
     Indication: GASTRIC HAEMORRHAGE
     Dosage: 30 MG/DAY PO
     Route: 048
     Dates: start: 20041120, end: 20041121
  3. MALOX [Concomitant]
  4. EUTIROX [Concomitant]
  5. NEBILOX [Concomitant]
  6. EPREX [Concomitant]
  7. RENAGEL [Concomitant]
  8. SUCRALFIN [Concomitant]
  9. CALCIJEX [Concomitant]

REACTIONS (18)
  - ANAEMIA [None]
  - ANTITHROMBIN III DECREASED [None]
  - ANURIA [None]
  - ASTHENIA [None]
  - BAND NEUTROPHIL COUNT INCREASED [None]
  - BLOOD CHOLINESTERASE DECREASED [None]
  - BLOOD PRESSURE INCREASED [None]
  - CARDIAC ARREST [None]
  - CONFUSIONAL STATE [None]
  - GASTRIC ULCER HAEMORRHAGE [None]
  - MULTI-ORGAN DISORDER [None]
  - PAIN [None]
  - PLATELET AGGREGATION INCREASED [None]
  - PLEURAL EFFUSION [None]
  - RENAL FAILURE [None]
  - STEVENS-JOHNSON SYNDROME [None]
  - TOXIC EPIDERMAL NECROLYSIS [None]
  - TRANSAMINASES INCREASED [None]
